FAERS Safety Report 7023073-9 (Version None)
Quarter: 2010Q3

REPORT INFORMATION
  Report Type: 
  Country: None (occurrence: None)
  Receive Date: 20100930
  Receipt Date: 20100920
  Transmission Date: 20110219
  Serious: Yes (Disabling, Other)
  Sender: FDA-Public Use
  Company Number: US-PFIZER INC-2010117372

PATIENT
  Sex: Male

DRUGS (6)
  1. LIPITOR [Interacting]
     Dosage: UNK
  2. CARVEDILOL [Interacting]
     Indication: ARRHYTHMIA
     Dosage: 3.125MG IN THE MORNING; 6.25MG IN THE EVENING
     Route: 048
     Dates: start: 20091001
  3. CARVEDILOL [Interacting]
     Dosage: UNK
     Route: 048
  4. CARVEDILOL [Suspect]
  5. SOTALOL [Interacting]
     Dosage: UNK
  6. VALSARTAN [Interacting]
     Dosage: UNK

REACTIONS (4)
  - ASTHENIA [None]
  - DRUG INTERACTION [None]
  - DYSPNOEA [None]
  - FATIGUE [None]
